FAERS Safety Report 9294005 (Version 1)
Quarter: 2013Q1

REPORT INFORMATION
  Report Type: Spontaneous
  Country: US (occurrence: None)
  Receive Date: 20121226
  Receipt Date: 20121226
  Transmission Date: 20140127
  Serious: Yes (Hospitalization)
  Sender: FDA-Public Use
  Company Number: SP05506

PATIENT
  Age: 45 Year
  Sex: Female
  Weight: 60.33 kg

DRUGS (2)
  1. APRISO [Suspect]
     Indication: CROHN^S DISEASE
     Dosage: 4 DOSAGE FORMS (4 DOSAGE FORMS, 1 IN 1 D), ORAL
     Route: 048
     Dates: start: 201111, end: 20120104
  2. PREVACID [Concomitant]

REACTIONS (2)
  - Abdominal pain [None]
  - Hepatic enzyme increased [None]
